FAERS Safety Report 6059421-6 (Version None)
Quarter: 2009Q1

REPORT INFORMATION
  Report Type: 
  Country: None (occurrence: None)
  Receive Date: 20090130
  Receipt Date: 20090126
  Transmission Date: 20090719
  Serious: Yes (Death)
  Sender: FDA-Public Use
  Company Number: PHEH2009US00856

PATIENT
  Sex: Male

DRUGS (3)
  1. MYFORTIC [Suspect]
     Indication: PULMONARY FIBROSIS
  2. ATIVAN [Concomitant]
  3. STEROIDS NOS [Concomitant]
     Indication: PULMONARY FIBROSIS

REACTIONS (1)
  - PULMONARY FIBROSIS [None]
